FAERS Safety Report 5229295-1 (Version None)
Quarter: 2007Q1

REPORT INFORMATION
  Report Type: 
  Country: None (occurrence: None)
  Receive Date: 20061201
  Receipt Date: 20060908
  Transmission Date: 20070707
  Serious: No
  Sender: FDA-Public Use
  Company Number: US200609001954

PATIENT
  Sex: Male

DRUGS (3)
  1. CYMBALTA [Suspect]
     Indication: SPINAL COLUMN STENOSIS
     Dosage: SEE IMAGE
     Dates: start: 20060601
  2. PREGABALIN (PREGABALIN) [Concomitant]
  3. LIPITOR [Concomitant]

REACTIONS (6)
  - DYSURIA [None]
  - FATIGUE [None]
  - GAIT DISTURBANCE [None]
  - HOT FLUSH [None]
  - HYPERHIDROSIS [None]
  - THINKING ABNORMAL [None]
